FAERS Safety Report 9350019 (Version 2)
Quarter: 2013Q3

REPORT INFORMATION
  Report Type: Report from Study
  Country: KR (occurrence: KR)
  Receive Date: 20130615
  Receipt Date: 20130701
  Transmission Date: 20140515
  Serious: Yes (Hospitalization)
  Sender: FDA-Public Use
  Company Number: KR-MERCK-1306KOR004944

PATIENT
  Age: 64 Year
  Sex: Female
  Weight: 36.2 kg

DRUGS (8)
  1. VORINOSTAT [Suspect]
     Indication: GASTRIC CANCER
     Dosage: 400 MG, QD
     Route: 048
     Dates: start: 20130521, end: 20130601
  2. CAPECITABINE [Suspect]
     Indication: GASTRIC CANCER
     Dosage: 2300 MG, BID
     Route: 048
     Dates: start: 20130521, end: 20130604
  3. CISPLATIN [Suspect]
     Indication: GASTRIC CANCER
     Dosage: 43 MG, QD
     Route: 042
     Dates: start: 20130521, end: 20130521
  4. SODIUM BICARBONATE [Concomitant]
     Indication: PROPHYLAXIS
     Dosage: GARGLE - INTERMITTENT
     Dates: start: 20130521
  5. RAMOSETRON [Concomitant]
     Indication: PROPHYLAXIS
     Dosage: 0.3 MG DAILY
     Dates: start: 20130521, end: 20130521
  6. DEXAMETHASONE [Concomitant]
     Indication: PROPHYLAXIS
     Dosage: 16 MG, DAILY
     Route: 048
     Dates: start: 20130521, end: 20130521
  7. APREPITANT [Concomitant]
     Indication: PROPHYLAXIS
     Dosage: 125 MG, DAILY
     Dates: start: 20130521, end: 20130521
  8. APREPITANT [Concomitant]
     Dosage: 80 MG, DAILY
     Dates: start: 20130522, end: 20130523

REACTIONS (1)
  - Cerebral infarction [Recovered/Resolved]
